FAERS Safety Report 7237540-6 (Version None)
Quarter: 2011Q1

REPORT INFORMATION
  Report Type: 
  Country: None (occurrence: None)
  Receive Date: 20110121
  Receipt Date: 20110113
  Transmission Date: 20110831
  Serious: Yes (Hospitalization)
  Sender: FDA-Public Use
  Company Number: JP-B.I. PHARMACEUTICALS,INC./RIDGEFIELD-2011-BP-00192NB

PATIENT
  Age: 70 Year
  Sex: Male

DRUGS (7)
  1. PERMAX [Suspect]
     Indication: PARKINSON'S DISEASE
     Route: 048
     Dates: end: 20110101
  2. SYMMETREL [Concomitant]
  3. MADOPAR [Concomitant]
  4. COMTAN [Concomitant]
  5. CABASER [Suspect]
     Indication: PARKINSON'S DISEASE
     Route: 048
     Dates: end: 20101201
  6. BI-SIFROL TABLETS [Suspect]
     Indication: PARKINSON'S DISEASE
     Dosage: 4.5 MG
     Route: 048
  7. ERISPAN [Concomitant]

REACTIONS (2)
  - PLEURISY [None]
  - PLEURAL EFFUSION [None]
